FAERS Safety Report 13404688 (Version 1)
Quarter: 2017Q2

REPORT INFORMATION
  Report Type: Report from Study
  Country: US (occurrence: US)
  Receive Date: 20170405
  Receipt Date: 20170405
  Transmission Date: 20170830
  Serious: Yes (Hospitalization, Other)
  Sender: FDA-Public Use
  Company Number: US-AMGEN-USASL2017047597

PATIENT
  Age: 60 Year
  Sex: Female

DRUGS (1)
  1. ENBREL [Suspect]
     Active Substance: ETANERCEPT
     Indication: PRODUCT USED FOR UNKNOWN INDICATION
     Dosage: UNK
     Route: 065

REACTIONS (6)
  - Hiatus hernia [Unknown]
  - Hospitalisation [Unknown]
  - Lipoma [Unknown]
  - Diverticulitis [Unknown]
  - Surgery [Unknown]
  - Post procedural complication [Not Recovered/Not Resolved]

NARRATIVE: CASE EVENT DATE: 201703
